FAERS Safety Report 22236605 (Version 1)
Quarter: 2023Q2

REPORT INFORMATION
  Report Type: Spontaneous
  Country: TR (occurrence: TR)
  Receive Date: 20230420
  Receipt Date: 20230420
  Transmission Date: 20230722
  Serious: Yes (Hospitalization)
  Sender: FDA-Public Use
  Company Number: TR-BEH-2023157789

PATIENT
  Age: 5 Year
  Sex: Male

DRUGS (1)
  1. HIZENTRA [Suspect]
     Active Substance: HUMAN IMMUNOGLOBULIN G
     Route: 058

REACTIONS (4)
  - Pneumonia [Unknown]
  - Toothache [Unknown]
  - No adverse event [Unknown]
  - Therapy interrupted [Unknown]
